FAERS Safety Report 7359413-0 (Version None)
Quarter: 2011Q1

REPORT INFORMATION
  Report Type: 
  Country: None (occurrence: None)
  Receive Date: 20110317
  Receipt Date: 20091223
  Transmission Date: 20110831
  Serious: No
  Sender: FDA-Public Use
  Company Number: US-PFIZER INC-2009315061

PATIENT
  Sex: Female
  Weight: 82 kg

DRUGS (1)
  1. AMLODIPINE BESYLATE [Suspect]
     Indication: HYPERTENSION
     Dosage: 5 MG, 1X/DAY
     Dates: start: 20090101

REACTIONS (5)
  - TOOTH LOSS [None]
  - SWELLING [None]
  - SKIN IRRITATION [None]
  - DRY SKIN [None]
  - BURNING SENSATION [None]
